FAERS Safety Report 5580063-0 (Version None)
Quarter: 2008Q1

REPORT INFORMATION
  Report Type: 
  Country: None (occurrence: None)
  Receive Date: 20080103
  Receipt Date: 20071024
  Transmission Date: 20080703
  Serious: No
  Sender: FDA-Public Use
  Company Number: US-BAYER-US-2007-040795

PATIENT
  Age: 47 Year
  Sex: Female
  Weight: 54 kg

DRUGS (4)
  1. YAZ [Suspect]
     Indication: MENSTRUATION IRREGULAR
     Route: 048
     Dates: start: 20070401
  2. ZOLOFT [Concomitant]
  3. CALCIUM [Concomitant]
  4. VITAMINS [Concomitant]

REACTIONS (4)
  - APPETITE DISORDER [None]
  - MENSTRUATION IRREGULAR [None]
  - WEIGHT INCREASED [None]
  - WITHDRAWAL BLEED [None]
